FAERS Safety Report 15827557 (Version 3)
Quarter: 2020Q1

REPORT INFORMATION
  Report Type: Spontaneous
  Country: US (occurrence: US)
  Receive Date: 20190115
  Receipt Date: 20200108
  Transmission Date: 20200409
  Serious: No
  Sender: FDA-Public Use
  Company Number: US-PFIZER INC-2015097625

PATIENT
  Age: 48 Year
  Sex: Female

DRUGS (13)
  1. VITAMIN B COMPLEX [Concomitant]
     Active Substance: CYANOCOBALAMIN\DEXPANTHENOL\NIACINAMIDE\PYRIDOXINE HYDROCHLORIDE\RIBOFLAVIN 5^-PHOSPHATE SODIUM\THIAMINE HYDROCHLORIDE\VITAMIN B COMPLEX
     Dosage: 2 DF, DAILY
     Route: 048
  2. RELPAX [Suspect]
     Active Substance: ELETRIPTAN HYDROBROMIDE
     Indication: HEADACHE
     Dosage: 40 MG, AS NEEDED,1 TABLET BY MOUTH 1 TIMES AS NEEDED FOR MIGRAINE MAY REPEAT IN 2 HOURS IF NECESSARY
     Route: 048
  3. MECLIZINE HCL [Concomitant]
     Active Substance: MECLIZINE HYDROCHLORIDE
     Indication: NAUSEA
     Dosage: 25 MG, AS NEEDED (6-8HOURS PRN)
     Route: 048
     Dates: start: 20160322
  4. PROZAC [Concomitant]
     Active Substance: FLUOXETINE HYDROCHLORIDE
     Dosage: 60 MG (20MG TAKE 3), 1X/DAY
     Route: 048
     Dates: start: 20150429
  5. OMEPRAZOLE. [Concomitant]
     Active Substance: OMEPRAZOLE
     Dosage: 40 MG, DAILY
     Dates: start: 20150612
  6. METOPROLOL TARTRATE. [Concomitant]
     Active Substance: METOPROLOL TARTRATE
     Dosage: 1.5 DF (ONE-HALF TABLET), 2X/DAY
     Route: 048
  7. NP THYROID [Concomitant]
     Active Substance: LEVOTHYROXINE\LIOTHYRONINE
     Dosage: 1.5 DF (60 MG TABLET AT 1 TABLET IN THE MORNING AND 0.5 TABLET AT NIGHT), DAILY
     Route: 048
     Dates: start: 20160322
  8. WELLBUTRIN XL [Concomitant]
     Active Substance: BUPROPION HYDROCHLORIDE
     Dosage: 300 MG (XR 24H TAB), DAILY
     Route: 048
     Dates: start: 20150428
  9. RELPAX [Suspect]
     Active Substance: ELETRIPTAN HYDROBROMIDE
     Indication: MIGRAINE WITHOUT AURA
  10. RELPAX [Suspect]
     Active Substance: ELETRIPTAN HYDROBROMIDE
     Indication: MIGRAINE
     Dosage: 1 DF (40 MG) AT ONSET OF MIGRAINE/ HEADACHE [MAY NOT REPEAT]
     Route: 048
     Dates: start: 20150428
  11. MAGNESIUM OXIDE. [Concomitant]
     Active Substance: MAGNESIUM OXIDE
     Dosage: 1-2 TABLET, 1X/DAY AT NIGHT
     Route: 048
     Dates: start: 20160322
  12. XANAX [Concomitant]
     Active Substance: ALPRAZOLAM
     Indication: ANXIETY
     Dosage: 0.25 MG, DAILY PRN
     Route: 048
     Dates: start: 20161021
  13. MULTIVITAMINS [Concomitant]
     Active Substance: VITAMINS
     Dosage: 1 DF, DAILY

REACTIONS (1)
  - Product dispensing error [Unknown]
